FAERS Safety Report 16327909 (Version 1)
Quarter: 2019Q2

REPORT INFORMATION
  Report Type: Spontaneous
  Country: US (occurrence: US)
  Receive Date: 20190518
  Receipt Date: 20190518
  Transmission Date: 20190711
  Serious: No
  Sender: FDA-Public Use
  Company Number: US-ZYDUS-035945

PATIENT
  Sex: Female

DRUGS (1)
  1. METHYLPREDNISOLONE. [Suspect]
     Active Substance: METHYLPREDNISOLONE
     Indication: PRODUCT USED FOR UNKNOWN INDICATION
     Dosage: TAPERED DOSE AS DIRECTED
     Route: 048
     Dates: start: 201904

REACTIONS (4)
  - Palpitations [Unknown]
  - Skin texture abnormal [Unknown]
  - Insomnia [Unknown]
  - Rash generalised [Unknown]

NARRATIVE: CASE EVENT DATE: 201904
